FAERS Safety Report 23229497 (Version 1)
Quarter: 2023Q4

REPORT INFORMATION
  Report Type: Spontaneous
  Country: ZA (occurrence: None)
  Receive Date: 20231127
  Receipt Date: 20231127
  Transmission Date: 20240110
  Serious: Yes (Death)
  Sender: FDA-Public Use
  Company Number: 2023A267639

PATIENT
  Age: 60 Year
  Sex: Female

DRUGS (5)
  1. DAPAGLIFLOZIN [Suspect]
     Active Substance: DAPAGLIFLOZIN
     Indication: Diabetes mellitus
     Route: 048
  2. WARFARIN [Concomitant]
     Active Substance: WARFARIN
     Indication: Coagulopathy
     Route: 048
  3. OSTEONATE [Concomitant]
     Indication: Osteoporosis
     Route: 048
  4. LEVOTHYROXINE [Concomitant]
     Active Substance: LEVOTHYROXINE
     Indication: Hypothyroidism
     Route: 048
  5. FUROSEMIDE [Concomitant]
     Active Substance: FUROSEMIDE
     Indication: Hypertension
     Route: 048

REACTIONS (2)
  - Death [Fatal]
  - Inappropriate schedule of product administration [Unknown]
